FAERS Safety Report 13879660 (Version 1)
Quarter: 2017Q3

REPORT INFORMATION
  Report Type: Spontaneous
  Country: AE (occurrence: AE)
  Receive Date: 20170818
  Receipt Date: 20170818
  Transmission Date: 20171127
  Serious: Yes (Other)
  Sender: FDA-Public Use
  Company Number: AE-AMGEN-ARESP2017123657

PATIENT
  Age: 47 Year
  Sex: Male
  Weight: 69 kg

DRUGS (5)
  1. PROCARBAZINE [Concomitant]
     Active Substance: PROCARBAZINE
     Dosage: 120 MG
     Dates: start: 20161211
  2. VINCRISTINE [Concomitant]
     Active Substance: VINCRISTINE
     Dosage: 2 MG
     Dates: start: 20161211
  3. NPLATE [Suspect]
     Active Substance: ROMIPLOSTIM
     Indication: PRODUCT USED FOR UNKNOWN INDICATION
     Dosage: 250
     Route: 058
  4. LOMUSTINE. [Concomitant]
     Active Substance: LOMUSTINE
     Dosage: 220 MG
     Dates: start: 20161211
  5. NEUPOGEN [Concomitant]
     Active Substance: FILGRASTIM
     Dosage: 30 MUG
     Dates: start: 201701

REACTIONS (2)
  - Platelet count abnormal [Unknown]
  - Injection site haematoma [Recovering/Resolving]

NARRATIVE: CASE EVENT DATE: 20170804
